FAERS Safety Report 4286456-6 (Version None)
Quarter: 2004Q1

REPORT INFORMATION
  Report Type: 
  Country: None (occurrence: None)
  Receive Date: 20040204
  Receipt Date: 20040126
  Transmission Date: 20041129
  Serious: Yes (Death)
  Sender: FDA-Public Use
  Company Number: 163-20785-04010647 (0)

PATIENT
  Age: 86 Year
  Sex: Female

DRUGS (1)
  1. THALOMID [Suspect]
     Indication: RENAL CELL CARCINOMA STAGE UNSPECIFIED
     Dosage: 400 MG, DAILY, ORAL
     Route: 048
     Dates: start: 20031208, end: 20031201

REACTIONS (3)
  - BACK PAIN [None]
  - CARDIAC ARREST [None]
  - CONVULSION [None]
